FAERS Safety Report 4836816-7 (Version None)
Quarter: 2005Q4

REPORT INFORMATION
  Report Type: 
  Country: None (occurrence: None)
  Receive Date: 20051123
  Receipt Date: 20050426
  Transmission Date: 20060501
  Serious: Yes (Other)
  Sender: FDA-Public Use
  Company Number: US-ABBOTT-05P-163-0298443-00

PATIENT
  Sex: Male
  Weight: 91 kg

DRUGS (2)
  1. BIAXIN XL [Suspect]
     Indication: BRONCHITIS
     Route: 048
     Dates: start: 20050203, end: 20050209
  2. MYLANTA [Concomitant]
     Indication: DRUG USE FOR UNKNOWN INDICATION

REACTIONS (15)
  - AGITATION [None]
  - ANXIETY [None]
  - ASTHENIA [None]
  - BLOOD PRESSURE INCREASED [None]
  - CHEST PAIN [None]
  - COLD SWEAT [None]
  - DYSPNOEA [None]
  - FEELING COLD [None]
  - FEELING JITTERY [None]
  - GASTRITIS [None]
  - HEART RATE INCREASED [None]
  - HYPOAESTHESIA [None]
  - PALLOR [None]
  - PARAESTHESIA [None]
  - SINUS TACHYCARDIA [None]
